FAERS Safety Report 10258392 (Version 2)
Quarter: 2014Q2

REPORT INFORMATION
  Report Type: Spontaneous
  Country: US (occurrence: US)
  Receive Date: 20140625
  Receipt Date: 20140625
  Transmission Date: 20141212
  Serious: No
  Sender: FDA-Public Use
  Company Number: US-HORIZON-VIM-0022-2014

PATIENT
  Age: 43 Year
  Sex: Female

DRUGS (1)
  1. VIMOVO [Suspect]
     Indication: BACK PAIN
     Dates: start: 201402

REACTIONS (2)
  - Diarrhoea [Recovered/Resolved]
  - Wrong technique in drug usage process [Not Recovered/Not Resolved]
